FAERS Safety Report 25807651 (Version 1)
Quarter: 2025Q3

REPORT INFORMATION
  Report Type: Spontaneous
  Country: CN (occurrence: CN)
  Receive Date: 20250916
  Receipt Date: 20250916
  Transmission Date: 20251021
  Serious: Yes (Hospitalization)
  Sender: BEIGENE
  Company Number: CN-BEIGENE-BGN-2025-015508

PATIENT
  Age: 71 Year
  Weight: 56 kg

DRUGS (12)
  1. TISLELIZUMAB [Suspect]
     Active Substance: TISLELIZUMAB
     Indication: Lung neoplasm malignant
  2. TISLELIZUMAB [Suspect]
     Active Substance: TISLELIZUMAB
     Indication: Metastases to bone
     Route: 041
  3. TISLELIZUMAB [Suspect]
     Active Substance: TISLELIZUMAB
     Route: 041
  4. TISLELIZUMAB [Suspect]
     Active Substance: TISLELIZUMAB
  5. PACLITAXEL [Suspect]
     Active Substance: PACLITAXEL
     Indication: Lung neoplasm malignant
     Route: 041
  6. PACLITAXEL [Suspect]
     Active Substance: PACLITAXEL
     Indication: Metastases to bone
  7. CISPLATIN [Concomitant]
     Active Substance: CISPLATIN
     Indication: Lung neoplasm malignant
     Dosage: 40 MILLIGRAM, TID
     Route: 041
  8. CISPLATIN [Concomitant]
     Active Substance: CISPLATIN
     Indication: Metastases to bone
     Dosage: 40 MILLIGRAM, TID
  9. SODIUM CHLORIDE [Concomitant]
     Active Substance: SODIUM CHLORIDE
     Indication: Vehicle solution use
  10. SODIUM CHLORIDE [Concomitant]
     Active Substance: SODIUM CHLORIDE
     Route: 041
  11. SODIUM CHLORIDE [Concomitant]
     Active Substance: SODIUM CHLORIDE
  12. SODIUM CHLORIDE [Concomitant]
     Active Substance: SODIUM CHLORIDE
     Route: 041

REACTIONS (2)
  - Rash pruritic [Recovering/Resolving]
  - Neurotoxicity [Recovering/Resolving]
